FAERS Safety Report 8064696-8 (Version None)
Quarter: 2012Q1

REPORT INFORMATION
  Report Type: 
  Country: None (occurrence: None)
  Receive Date: 20120123
  Receipt Date: 20120116
  Transmission Date: 20120608
  Serious: Yes (Death, Hospitalization, Other)
  Sender: FDA-Public Use
  Company Number: US-ROXANE LABORATORIES, INC.-2012-EU-00368GD

PATIENT
  Age: 26 Year
  Sex: Male

DRUGS (4)
  1. ALPRAZOLAM [Suspect]
     Route: 048
  2. AMITRIPTYLINE HCL [Concomitant]
     Dosage: 2 ANZ
  3. CODEINE SULFATE [Suspect]
     Route: 048
  4. MORPHINE [Suspect]
     Route: 048

REACTIONS (9)
  - PULMONARY OEDEMA [None]
  - HYPOTENSION [None]
  - VISCERAL CONGESTION [None]
  - DRUG ABUSE [None]
  - MENTAL STATUS CHANGES [None]
  - TOXICITY TO VARIOUS AGENTS [None]
  - VENTRICULAR TACHYCARDIA [None]
  - UNRESPONSIVE TO STIMULI [None]
  - CARDIOMYOPATHY [None]
